FAERS Safety Report 25853285 (Version 1)
Quarter: 2025Q3

REPORT INFORMATION
  Report Type: Spontaneous
  Country: US (occurrence: None)
  Receive Date: 20250925
  Receipt Date: 20250925
  Transmission Date: 20251021
  Serious: Yes (Hospitalization)
  Sender: FDA-CTU
  Company Number: None

PATIENT
  Age: 28 Year
  Sex: Female

DRUGS (4)
  1. CYANOCOBALAMIN\NALTREXONE\TOPIRAMATE [Suspect]
     Active Substance: CYANOCOBALAMIN\NALTREXONE\TOPIRAMATE
     Indication: Weight decreased
     Dosage: FREQUENCY : TWICE A DAY;?
     Route: 048
     Dates: start: 20250724, end: 20250924
  2. BUPROPION [Suspect]
     Active Substance: BUPROPION
     Dates: start: 20250724, end: 20250924
  3. METFORMIN [Suspect]
     Active Substance: METFORMIN HYDROCHLORIDE
     Dates: start: 20250814, end: 20250924
  4. ONDANSETRON [Suspect]
     Active Substance: ONDANSETRON

REACTIONS (8)
  - Feeling jittery [None]
  - Paraesthesia [None]
  - Hypoaesthesia [None]
  - Asthenia [None]
  - Cold flash [None]
  - Hot flush [None]
  - Hyperhidrosis [None]
  - Mania [None]

NARRATIVE: CASE EVENT DATE: 20250924
